FAERS Safety Report 9574911 (Version 1)
Quarter: 2013Q4

REPORT INFORMATION
  Report Type: Spontaneous
  Country: FR (occurrence: FR)
  Receive Date: 20131001
  Receipt Date: 20131001
  Transmission Date: 20140711
  Serious: Yes (Hospitalization, Other)
  Sender: FDA-Public Use
  Company Number: FR-PFIZER INC-2013277934

PATIENT
  Age: 80 Year
  Sex: Female

DRUGS (3)
  1. LYRICA [Suspect]
     Indication: POLYNEUROPATHY
     Dosage: 200 MG, 2X/DAY
     Route: 048
     Dates: end: 20121116
  2. LAMALINE [Suspect]
     Indication: POLYNEUROPATHY
     Dosage: UNK
     Route: 048
     Dates: end: 20121116
  3. DAFALGAN [Concomitant]

REACTIONS (6)
  - Confusional state [Recovered/Resolved]
  - Persecutory delusion [Recovered/Resolved]
  - Hallucination [Recovered/Resolved]
  - Pain in extremity [Unknown]
  - Drug abuse [Unknown]
  - Circadian rhythm sleep disorder [Unknown]
